FAERS Safety Report 9540540 (Version 3)
Quarter: 2013Q4

REPORT INFORMATION
  Report Type: Spontaneous
  Country: JP (occurrence: JP)
  Receive Date: 20130920
  Receipt Date: 20131104
  Transmission Date: 20140711
  Serious: Yes (Hospitalization)
  Sender: FDA-Public Use
  Company Number: JP-PFIZER INC-2013271455

PATIENT
  Age: 74 Year
  Sex: Female

DRUGS (3)
  1. JZOLOFT [Suspect]
     Dosage: UNK
     Route: 048
     Dates: end: 201309
  2. SULPIRIDE [Suspect]
     Dosage: UNK
     Route: 048
  3. ZYPREXA [Suspect]
     Dosage: UNK
     Route: 048

REACTIONS (1)
  - Parkinsonism [Recovered/Resolved]
